FAERS Safety Report 5501319-3 (Version None)
Quarter: 2007Q4

REPORT INFORMATION
  Report Type: 
  Country: None (occurrence: None)
  Receive Date: 20071026
  Receipt Date: 20071015
  Transmission Date: 20080405
  Serious: Yes (Hospitalization)
  Sender: FDA-Public Use
  Company Number: 2007BI019825

PATIENT
  Age: 50 Year
  Sex: Female

DRUGS (4)
  1. AVONEX [Suspect]
     Indication: MULTIPLE SCLEROSIS
     Dosage: 30 UG; IM
     Route: 030
     Dates: start: 20050407, end: 20070504
  2. RANITIDINE [Concomitant]
  3. GABAPENTIN [Concomitant]
  4. PROZAC [Concomitant]

REACTIONS (5)
  - DIPLOPIA [None]
  - DISEASE PROGRESSION [None]
  - FATIGUE [None]
  - LETHARGY [None]
  - OVERDOSE [None]
